FAERS Safety Report 9418779 (Version 1)
Quarter: 2013Q3

REPORT INFORMATION
  Report Type: Spontaneous
  Country: US (occurrence: US)
  Receive Date: 20130725
  Receipt Date: 20130725
  Transmission Date: 20140515
  Serious: Yes (Death)
  Sender: FDA-Public Use
  Company Number: US-PFIZER INC-2013215473

PATIENT
  Age: 78 Year
  Sex: Male

DRUGS (2)
  1. SUTENT [Suspect]
     Indication: RENAL CANCER
     Dosage: 12.5 MG, UNK
     Dates: start: 20121207
  2. SUTENT [Suspect]
     Dosage: 25 MG, 4WKS ON 2WKS OFF

REACTIONS (2)
  - Disease progression [Fatal]
  - Renal cancer [Fatal]
